FAERS Safety Report 4750803-9 (Version None)
Quarter: 2005Q3

REPORT INFORMATION
  Report Type: 
  Country: None (occurrence: None)
  Receive Date: 20050822
  Receipt Date: 20050805
  Transmission Date: 20060218
  Serious: Yes (Hospitalization)
  Sender: FDA-Public Use
  Company Number: 207153

PATIENT
  Age: 41 Year
  Sex: Female
  Weight: 90.7194 kg

DRUGS (4)
  1. AVONEX [Suspect]
     Indication: MULTIPLE SCLEROSIS
     Dosage: 30 UG QW IM
     Route: 030
     Dates: end: 20040901
  2. LEXAPRO [Concomitant]
  3. KLONOPIN [Concomitant]
  4. ZONEGRAN [Concomitant]

REACTIONS (10)
  - ABDOMINAL PAIN UPPER [None]
  - ASTHENIA [None]
  - BLINDNESS TRANSIENT [None]
  - CONDITION AGGRAVATED [None]
  - CONTUSION [None]
  - DEAFNESS [None]
  - FALL [None]
  - MULTIPLE SCLEROSIS [None]
  - POLLAKIURIA [None]
  - WEIGHT INCREASED [None]
